FAERS Safety Report 12958094 (Version 1)
Quarter: 2016Q4

REPORT INFORMATION
  Report Type: Report from Study
  Country: CZ (occurrence: CZ)
  Receive Date: 20161120
  Receipt Date: 20161120
  Transmission Date: 20170207
  Serious: Yes (Hospitalization)
  Sender: FDA-Public Use
  Company Number: CZ-ROCHE-1853141

PATIENT
  Age: 6 Year
  Sex: Male
  Weight: 20.1 kg

DRUGS (13)
  1. CYTARABINE. [Suspect]
     Active Substance: CYTARABINE
     Indication: MEDULLOBLASTOMA
     Dosage: LIPOSOME?LAST TREATMENT RECEIVED ON 25/OCT/2016.
     Route: 037
     Dates: start: 20160609
  2. FROMILID [Concomitant]
     Active Substance: CLARITHROMYCIN
     Indication: BRONCHITIS
  3. ETOPOSIDE. [Suspect]
     Active Substance: ETOPOSIDE
     Route: 037
     Dates: start: 20160609
  4. FENOFIBRATE. [Suspect]
     Active Substance: FENOFIBRATE
     Indication: MEDULLOBLASTOMA
     Route: 048
     Dates: start: 20160609
  5. CYCLOPHOSPHAMIDE. [Suspect]
     Active Substance: CYCLOPHOSPHAMIDE
     Indication: MEDULLOBLASTOMA
     Route: 048
     Dates: start: 20160609
  6. EUTHYROX [Concomitant]
     Active Substance: LEVOTHYROXINE SODIUM
     Indication: HYPERTHYROIDISM
     Route: 048
  7. ETOPOSIDE. [Suspect]
     Active Substance: ETOPOSIDE
     Indication: MEDULLOBLASTOMA
     Route: 048
     Dates: start: 20160609
  8. SUMETROLIM [Concomitant]
     Indication: ANTIFUNGAL PROPHYLAXIS
     Dosage: MONDAY AND TUESDAY
     Route: 048
  9. BEVACIZUMAB [Suspect]
     Active Substance: BEVACIZUMAB
     Indication: MEDULLOBLASTOMA
     Route: 042
     Dates: start: 20160609
  10. FROMILID [Concomitant]
     Active Substance: CLARITHROMYCIN
     Indication: RESPIRATORY TRACT INFECTION
     Route: 048
     Dates: start: 20161026
  11. THALIDOMIDE [Suspect]
     Active Substance: THALIDOMIDE
     Indication: MEDULLOBLASTOMA
     Route: 048
     Dates: start: 20160609
  12. CELECOXIB. [Suspect]
     Active Substance: CELECOXIB
     Indication: MEDULLOBLASTOMA
     Route: 048
     Dates: start: 20160609
  13. AMOKSIKLAV [Concomitant]
     Active Substance: AMOXICILLIN\CLAVULANATE POTASSIUM

REACTIONS (1)
  - Arachnoiditis [Recovered/Resolved]

NARRATIVE: CASE EVENT DATE: 20161102
